FAERS Safety Report 7768859-8 (Version None)
Quarter: 2011Q3

REPORT INFORMATION
  Report Type: 
  Country: None (occurrence: None)
  Receive Date: 20110922
  Receipt Date: 20110325
  Transmission Date: 20111222
  Serious: Yes (Hospitalization)
  Sender: FDA-Public Use
  Company Number: US-ASTRAZENECA-2011SE17287

PATIENT
  Sex: Female

DRUGS (1)
  1. SEROQUEL [Suspect]
     Route: 048

REACTIONS (7)
  - SUICIDAL BEHAVIOUR [None]
  - MALAISE [None]
  - AGGRESSION [None]
  - INCREASED APPETITE [None]
  - ANGER [None]
  - LOGORRHOEA [None]
  - DYSPEPSIA [None]
